FAERS Safety Report 8757368 (Version 1)
Quarter: 2012Q4

REPORT INFORMATION
  Report Type: 
  Country: US (occurrence: US)
  Receive Date: 20120828
  Receipt Date: 20120828
  Transmission Date: 20130627
  Serious: Yes (Other)
  Sender: FDA-Public Use
  Company Number: US-BAYER-2012-087333

PATIENT
  Age: 30 Year
  Sex: Female
  Weight: 92.97 kg

DRUGS (18)
  1. YAZ [Suspect]
     Indication: ORAL CONTRACEPTION
  2. GIANVI [Suspect]
  3. VENTOLIN [Concomitant]
     Dosage: 18 g, 2 puffs every 6 hours  PRN
     Route: 045
  4. MELOXICAM [Concomitant]
     Indication: PAIN
     Dosage: 15 mg, daily
     Route: 048
  5. TRIAMCINOLONE [Concomitant]
     Indication: RASH
     Dosage: Apply until clear
     Route: 061
  6. HYOSCYAMINE [Concomitant]
     Dosage: 0.125 mg, UNK
     Route: 060
  7. NAPROXEN [Concomitant]
     Indication: PAIN
     Dosage: 500 mg, UNK
  8. CHANTIX [Concomitant]
     Indication: SMOKING CESSATION THERAPY
     Dosage: 0.5 mg, 1 daily for 3 days, then 1 twice a day
     Route: 048
  9. HYDROCODONE W/PARACETAMOL [Concomitant]
     Indication: PAIN
     Dosage: 5/500
     Route: 048
  10. HYDROCODONE W/ACETAMINOPHEN [Concomitant]
     Indication: PAIN
     Dosage: 7.5-500 mg every 6 hours, PRN
     Route: 048
  11. PROMETHAZINE [Concomitant]
     Indication: NAUSEA
     Dosage: 25 mg, every 6 hours PRN
  12. OXYCODONE/APAP [Concomitant]
     Indication: PAIN
     Dosage: 5/325 mg every 4-6 hours, PRN
     Route: 048
  13. CARISOPRODOL [Concomitant]
     Indication: PAIN
     Dosage: 350 mg, every 6 hours PRN
     Route: 048
  14. IBUPROFEN [Concomitant]
  15. CYMBALTA [Concomitant]
     Indication: ANXIETY
     Dosage: 60 mg, daily
     Route: 048
  16. INDERAL [Concomitant]
     Indication: HEADACHE
     Dosage: 80 mg, BID
     Route: 048
  17. NORFLEX [ORPHENADRINE CITRATE] [Concomitant]
     Dosage: 60 mg, UNK
  18. TORADOL [Concomitant]
     Dosage: 60 mg, UNK

REACTIONS (1)
  - Deep vein thrombosis [None]
